FAERS Safety Report 8837616 (Version 1)
Quarter: 2012Q4

REPORT INFORMATION
  Report Type: 
  Country: US (occurrence: US)
  Receive Date: 20121012
  Receipt Date: 20121012
  Transmission Date: 20130627
  Serious: Yes (Hospitalization, Other)
  Sender: FDA-Public Use
  Company Number: US-SANOFI-AVENTIS-2012SA072041

PATIENT
  Age: 4 Year
  Sex: Male
  Weight: 24.4 kg

DRUGS (9)
  1. LASIX [Suspect]
     Indication: FLUID IMBALANCE
     Route: 065
     Dates: start: 20120828
  2. AMPHOTERICIN B [Suspect]
     Route: 065
  3. VELCADE [Concomitant]
     Indication: PRECURSOR B-LYMPHOBLASTIC LEUKEMIA ACUTE
     Dosage: cyclic, IV , bolus
     Dates: start: 20120703, end: 20120829
  4. CLOFARABINE [Concomitant]
     Route: 065
  5. METHOTREXATE [Concomitant]
     Indication: B PRECURSOR TYPE ACUTE LEUKEMIA
     Dates: start: 20120703, end: 20120822
  6. METHOTREXATE [Concomitant]
     Indication: B PRECURSOR TYPE ACUTE LEUKEMIA
     Dates: start: 20120703, end: 20120822
  7. METHOTREXATE [Concomitant]
     Indication: B PRECURSOR TYPE ACUTE LEUKEMIA
     Dates: start: 20120703, end: 20120822
  8. ETOPOSIDE [Concomitant]
     Indication: B PRECURSOR TYPE ACUTE LEUKAEMIA
     Dates: start: 20120703, end: 20120826
  9. CYCLOPHOSPHAMIDE [Concomitant]
     Indication: B PRECURSOR TYPE ACUTE LEUKAEMIA
     Dates: start: 20120703, end: 20120826

REACTIONS (10)
  - Hypokalaemia [Not Recovered/Not Resolved]
  - Gastric haemorrhage [Not Recovered/Not Resolved]
  - Pain in extremity [Not Recovered/Not Resolved]
  - Abdominal pain [Not Recovered/Not Resolved]
  - Hyponatraemia [Not Recovered/Not Resolved]
  - Sepsis [Not Recovered/Not Resolved]
  - Device related infection [Not Recovered/Not Resolved]
  - Proctalgia [Not Recovered/Not Resolved]
  - Pulmonary oedema [Unknown]
  - Hypoxia [Recovering/Resolving]
